FAERS Safety Report 5336100-1 (Version None)
Quarter: 2007Q1

REPORT INFORMATION
  Report Type: 
  Country: None (occurrence: None)
  Receive Date: 20070302
  Receipt Date: 20061114
  Transmission Date: 20070707
  Serious: No
  Sender: FDA-Public Use
  Company Number: PHEH2006US14281

PATIENT
  Sex: Female

DRUGS (1)
  1. ENABLEX [Suspect]
     Dosage: 7.5 MG, QD, ORAL
     Route: 048

REACTIONS (1)
  - MOOD SWINGS [None]
